FAERS Safety Report 20191709 (Version 1)
Quarter: 2021Q4

REPORT INFORMATION
  Report Type: Spontaneous
  Country: US (occurrence: None)
  Receive Date: 20211216
  Receipt Date: 20211216
  Transmission Date: 20220303
  Serious: Yes (Other)
  Sender: FDA-Public Use
  Company Number: US-Hikma Pharmaceuticals USA Inc.-US-H14001-21-05277

PATIENT
  Age: 57 Year
  Sex: Male

DRUGS (6)
  1. PREDNISONE [Suspect]
     Active Substance: PREDNISONE
     Indication: Eosinophilic pneumonia chronic
     Route: 065
     Dates: start: 201411
  2. PREDNISONE [Suspect]
     Active Substance: PREDNISONE
     Dosage: 10-15 MG DAILY
     Route: 065
     Dates: end: 201702
  3. PREDNISONE [Suspect]
     Active Substance: PREDNISONE
     Route: 065
     Dates: start: 201801
  4. PREDNISONE [Suspect]
     Active Substance: PREDNISONE
     Dosage: TAPERED OVER THE NEXT THREE WEEKS
     Route: 065
  5. TAMSULOSIN [Concomitant]
     Active Substance: TAMSULOSIN
     Indication: Benign prostatic hyperplasia
     Dosage: UNKNOWN
     Route: 065
  6. FLUTICASONE PROPIONATE SALMETEROL [Concomitant]
     Indication: Product used for unknown indication
     Dosage: 250/50 MICROGRAM
     Route: 065

REACTIONS (3)
  - Weight increased [Unknown]
  - Osteopenia [Unknown]
  - Type 2 diabetes mellitus [Unknown]
